FAERS Safety Report 10674846 (Version 11)
Quarter: 2017Q1

REPORT INFORMATION
  Report Type: Report from Study
  Country: US (occurrence: US)
  Receive Date: 20141224
  Receipt Date: 20170116
  Transmission Date: 20170428
  Serious: Yes (Other)
  Sender: FDA-Public Use
  Company Number: US-SA-2014SA092537

PATIENT
  Age: 69 Year
  Sex: Female
  Weight: 62.59 kg

DRUGS (17)
  1. AUBAGIO [Suspect]
     Active Substance: TERIFLUNOMIDE
     Indication: MULTIPLE SCLEROSIS
     Route: 048
     Dates: start: 20140702
  2. BACTRIM [Concomitant]
     Active Substance: SULFAMETHOXAZOLE\TRIMETHOPRIM
  3. OXYBUTYNIN [Concomitant]
     Active Substance: OXYBUTYNIN
     Indication: INCONTINENCE
  4. POTASSIUM [Concomitant]
     Active Substance: POTASSIUM
  5. LATANOPROST. [Concomitant]
     Active Substance: LATANOPROST
     Indication: GLAUCOMA
  6. AZOR [Concomitant]
     Active Substance: AMLODIPINE BESYLATE\OLMESARTAN MEDOXOMIL
     Indication: BLOOD PRESSURE MEASUREMENT
     Dosage: 5 MG/20MG
  7. TIMOLOL. [Concomitant]
     Active Substance: TIMOLOL
     Indication: GLAUCOMA
     Dosage: EYE DROP
  8. MAGNESIUM [Concomitant]
     Active Substance: MAGNESIUM
  9. SIMVASTATIN. [Concomitant]
     Active Substance: SIMVASTATIN
  10. VITAMIN D3 [Concomitant]
     Active Substance: CHOLECALCIFEROL
  11. AUBAGIO [Suspect]
     Active Substance: TERIFLUNOMIDE
     Indication: MULTIPLE SCLEROSIS
     Route: 048
     Dates: start: 201508
  12. NEXIUM [Concomitant]
     Active Substance: ESOMEPRAZOLE MAGNESIUM
  13. RALOXIFENE HYDROCHLORIDE/RALOXIFENE HYDROCHLORIDE/RALOXIFENE HYDROCHLORIDE [Concomitant]
     Indication: MINERAL SUPPLEMENTATION
  14. ZOLOFT [Concomitant]
     Active Substance: SERTRALINE HYDROCHLORIDE
     Indication: DEPRESSION
  15. DOXYCYCLINE HYCLATE. [Concomitant]
     Active Substance: DOXYCYCLINE HYCLATE
     Dates: start: 20161107, end: 20161201
  16. CALCIUM [Concomitant]
     Active Substance: CALCIUM
  17. BIOTIN [Concomitant]
     Active Substance: BIOTIN

REACTIONS (18)
  - Hemiparesis [Unknown]
  - Memory impairment [Not Recovered/Not Resolved]
  - Crying [Recovered/Resolved]
  - Chapped lips [Unknown]
  - Nail disorder [Recovered/Resolved]
  - Feeling abnormal [Recovered/Resolved]
  - Ocular discomfort [Not Recovered/Not Resolved]
  - Dry mouth [Unknown]
  - Oral herpes [Unknown]
  - Gait disturbance [Unknown]
  - Fatigue [Recovered/Resolved]
  - Fall [Unknown]
  - Insomnia [Unknown]
  - Depression [Recovered/Resolved]
  - Muscular weakness [Not Recovered/Not Resolved]
  - Bronchitis [Not Recovered/Not Resolved]
  - Limb discomfort [Recovered/Resolved]
  - Foot fracture [Not Recovered/Not Resolved]

NARRATIVE: CASE EVENT DATE: 2014
